FAERS Safety Report 9774931 (Version 1)
Quarter: 2013Q4

REPORT INFORMATION
  Report Type: Spontaneous
  Country: US (occurrence: US)
  Receive Date: 20131220
  Receipt Date: 20131220
  Transmission Date: 20140711
  Serious: No
  Sender: FDA-Public Use
  Company Number: US-GLAXOSMITHKLINE-A1018411A

PATIENT
  Age: 88 Year
  Sex: Male

DRUGS (9)
  1. JALYN [Suspect]
     Indication: PROSTATOMEGALY
     Dosage: 1CAP PER DAY
     Route: 048
     Dates: start: 20130326
  2. TAMSULOSIN [Suspect]
     Indication: PROSTATOMEGALY
     Dosage: .4MG PER DAY
     Route: 048
     Dates: start: 2013, end: 2013
  3. AVODART [Suspect]
     Indication: PROSTATOMEGALY
     Dosage: .5MG PER DAY
     Route: 048
     Dates: start: 2013, end: 2013
  4. LISINOPRIL [Concomitant]
  5. LISINOPRIL [Concomitant]
  6. ASPIRIN [Concomitant]
  7. FOLIC ACID [Concomitant]
  8. LIPITOR [Concomitant]
  9. HYDROCHLOROTHIAZIDE [Concomitant]

REACTIONS (2)
  - Sensation of heaviness [Recovering/Resolving]
  - Somnolence [Unknown]
